FAERS Safety Report 11110461 (Version 1)
Quarter: 2015Q2

REPORT INFORMATION
  Report Type: Spontaneous
  Country: LB (occurrence: LB)
  Receive Date: 20150513
  Receipt Date: 20150513
  Transmission Date: 20150821
  Serious: Yes (Other)
  Sender: FDA-Public Use
  Company Number: PHHY2015LB054671

PATIENT
  Age: 22 Month
  Sex: Male

DRUGS (4)
  1. LEVETIRACETAM. [Suspect]
     Active Substance: LEVETIRACETAM
     Dosage: 500 MG, QD
     Route: 065
  2. LEVETIRACETAM. [Suspect]
     Active Substance: LEVETIRACETAM
     Dosage: 500 MG, QD
     Route: 065
  3. LEVETIRACETAM. [Suspect]
     Active Substance: LEVETIRACETAM
     Dosage: 750 MG, QD
     Route: 065
  4. LEVETIRACETAM. [Suspect]
     Active Substance: LEVETIRACETAM
     Indication: PETIT MAL EPILEPSY
     Dosage: 125 MG, BID
     Route: 065

REACTIONS (6)
  - Drop attacks [Recovered/Resolved]
  - Condition aggravated [Unknown]
  - Myoclonus [Recovered/Resolved]
  - Seizure cluster [Recovered/Resolved]
  - Petit mal epilepsy [Unknown]
  - Musculoskeletal discomfort [Recovered/Resolved]
